FAERS Safety Report 5711595-X (Version None)
Quarter: 2008Q2

REPORT INFORMATION
  Report Type: 
  Country: None (occurrence: None)
  Receive Date: 20080416
  Receipt Date: 20080410
  Transmission Date: 20081010
  Serious: Yes (Hospitalization)
  Sender: FDA-Public Use
  Company Number: WAES 0802CAN00048

PATIENT
  Age: 51 Year
  Sex: Male

DRUGS (15)
  1. ISENTRESS [Suspect]
     Indication: HIV INFECTION
     Dosage: 400 MG/BID PO
     Route: 048
     Dates: start: 20070928
  2. PREZISTA [Suspect]
     Indication: HIV INFECTION
     Dosage: 1200 MG
     Dates: start: 20070928
  3. RITONAVIR [Suspect]
     Indication: HIV INFECTION
     Dosage: 200 MG
     Dates: start: 20070928
  4. ENFUVIRTIDE [Suspect]
     Indication: HIV INFECTION
     Dosage: 180 MG
     Dates: start: 20070928
  5. DIDANOSINE [Suspect]
     Indication: HIV INFECTION
     Dosage: 250 MG
     Dates: start: 20070928
  6. TENOFOVIR [Suspect]
     Indication: HIV INFECTION
     Dosage: 300 MG
     Dates: start: 20070928
  7. TAB 0518-BLINDED THERAPY [Suspect]
     Indication: HIV INFECTION
     Dosage: PO
     Route: 048
     Dates: start: 20060419, end: 20070927
  8. ESOMEPRAZOLE MAGNESIUM [Concomitant]
  9. FUSIDATE SODIUM [Concomitant]
  10. GABAPENTIN [Concomitant]
  11. IBUPROFEN [Concomitant]
  12. SILDENAFIL CITRATE [Concomitant]
  13. SULFAMETHOXAZOLE AND TRIMETHOPRIM [Concomitant]
  14. VITAMINS [Concomitant]
  15. ZINC [Concomitant]

REACTIONS (10)
  - ADHESION [None]
  - ALANINE AMINOTRANSFERASE INCREASED [None]
  - ANION GAP DECREASED [None]
  - ASPARTATE AMINOTRANSFERASE INCREASED [None]
  - BLOOD SODIUM DECREASED [None]
  - GAMMA-GLUTAMYLTRANSFERASE INCREASED [None]
  - LIPASE INCREASED [None]
  - MEAN PLATELET VOLUME DECREASED [None]
  - PLATELET COUNT INCREASED [None]
  - SMALL INTESTINAL OBSTRUCTION [None]
